FAERS Safety Report 7546559-7 (Version None)
Quarter: 2011Q2

REPORT INFORMATION
  Report Type: 
  Country: None (occurrence: None)
  Receive Date: 20110614
  Receipt Date: 20110602
  Transmission Date: 20111010
  Serious: Yes (Hospitalization)
  Sender: FDA-Public Use
  Company Number: US-ELI_LILLY_AND_COMPANY-US201106000912

PATIENT
  Sex: Female
  Weight: 79.82 kg

DRUGS (11)
  1. LISINOPRIL [Concomitant]
     Indication: HYPERTENSION
     Dosage: UNK
     Route: 048
     Dates: start: 20050101
  2. PERCOCET [Concomitant]
     Indication: PAIN
     Dosage: 7.5 MG, UNK
     Route: 048
     Dates: start: 20110301
  3. CETUXIMAB [Suspect]
     Dosage: 250 MG/M2, WEEKLY (1/W)
     Route: 042
     Dates: start: 20110511
  4. PHENERGAN HCL [Concomitant]
     Indication: NAUSEA
     Dosage: 25 MG, UNK
     Dates: start: 20110301
  5. FENTANYL [Concomitant]
     Indication: PAIN
     Dosage: 25 UG, UNK
     Route: 062
     Dates: start: 20110429
  6. CETUXIMAB [Suspect]
     Indication: NON-SMALL CELL LUNG CANCER METASTATIC
     Dosage: 400 MG/M2, UNK
     Dates: start: 20110504, end: 20110504
  7. ESTROGEN NOS [Concomitant]
     Indication: HORMONE REPLACEMENT THERAPY
     Dosage: 2 MG, QD
     Route: 048
     Dates: start: 19700101
  8. XANAX [Concomitant]
     Indication: ANXIETY
     Dosage: 0.5 MG, UNK
     Dates: start: 20110411
  9. GEMCITABINE HYDROCHLORIDE [Suspect]
     Indication: NON-SMALL CELL LUNG CANCER METASTATIC
     Dosage: 1000 MG/M2, OTHER
     Route: 042
     Dates: start: 20110504
  10. EFFEXOR [Concomitant]
     Indication: DEPRESSION
     Dosage: 37.5 MG, UNK
     Route: 048
     Dates: start: 20110411
  11. CISPLATIN [Suspect]
     Indication: NON-SMALL CELL LUNG CANCER METASTATIC
     Dosage: 75 MG/M2, OTHER
     Route: 042
     Dates: start: 20110504

REACTIONS (1)
  - DEHYDRATION [None]
